FAERS Safety Report 10045933 (Version 2)
Quarter: 2014Q1

REPORT INFORMATION
  Report Type: Spontaneous
  Country: US (occurrence: US)
  Receive Date: 20140329
  Receipt Date: 20140329
  Transmission Date: 20141002
  Serious: Yes (Other)
  Sender: FDA-Public Use
  Company Number: US-GE HEALTHCARE MEDICAL DIAGNOSTICS-OSCN-PR-1004S-0091

PATIENT
  Age: 67 Year
  Sex: Male

DRUGS (2)
  1. OMNISCAN [Suspect]
     Indication: CENTRAL NERVOUS SYSTEM LESION
     Route: 042
     Dates: start: 20040614, end: 20040614
  2. MULTIHANCE [Suspect]
     Indication: MENTAL STATUS CHANGES
     Route: 042
     Dates: start: 20070411, end: 20070411

REACTIONS (1)
  - Nephrogenic systemic fibrosis [Not Recovered/Not Resolved]
